FAERS Safety Report 24706797 (Version 2)
Quarter: 2025Q2

REPORT INFORMATION
  Report Type: Spontaneous
  Country: US (occurrence: US)
  Receive Date: 20241206
  Receipt Date: 20250416
  Transmission Date: 20250717
  Serious: No
  Sender: BRISTOL MYERS SQUIBB
  Company Number: US-BRISTOL-MYERS SQUIBB COMPANY-2024-189544

PATIENT
  Age: 84 Year
  Sex: Female
  Weight: 68.04 kg

DRUGS (1)
  1. ELIQUIS [Suspect]
     Active Substance: APIXABAN
     Indication: Cardiac disorder
     Route: 048

REACTIONS (2)
  - Product dispensing error [Unknown]
  - Off label use [Unknown]
